FAERS Safety Report 5651176-X (Version None)
Quarter: 2008Q1

REPORT INFORMATION
  Report Type: 
  Country: None (occurrence: None)
  Receive Date: 20080305
  Receipt Date: 20080227
  Transmission Date: 20080703
  Serious: Yes (Life-Threatening)
  Sender: FDA-Public Use
  Company Number: JP-BAYER-200810053BYL

PATIENT
  Age: 68 Year
  Sex: Female
  Weight: 64 kg

DRUGS (5)
  1. ASPIRIN [Suspect]
     Indication: LACUNAR INFARCTION
     Dosage: TOTAL DAILY DOSE: 100 MG  UNIT DOSE: 100 MG
     Route: 048
     Dates: start: 20060912, end: 20080104
  2. DIOVAN [Suspect]
     Dosage: TOTAL DAILY DOSE: 80 MG
     Route: 048
  3. MAINTATE [Suspect]
     Dosage: TOTAL DAILY DOSE: 25 MG
     Route: 048
  4. NORVASC [Suspect]
     Dosage: TOTAL DAILY DOSE: 5 MG
     Route: 048
  5. DEPAS [Suspect]
     Dosage: TOTAL DAILY DOSE: 0.5 MG
     Route: 048

REACTIONS (2)
  - BLEEDING TIME PROLONGED [None]
  - THROMBOCYTOPENIA [None]
